FAERS Safety Report 5868471-1 (Version None)
Quarter: 2008Q3

REPORT INFORMATION
  Report Type: 
  Country: None (occurrence: None)
  Receive Date: 20080902
  Receipt Date: 20080902
  Transmission Date: 20090109
  Serious: Yes (Life-Threatening)
  Sender: FDA-Public Use
  Company Number: None

PATIENT
  Age: 87 Year
  Sex: Female
  Weight: 73.4827 kg

DRUGS (1)
  1. EVISTA [Suspect]
     Indication: OSTEOPOROSIS
     Dosage: 60 MG DAILY PO
     Route: 048
     Dates: start: 20050101, end: 20080824

REACTIONS (5)
  - BLINDNESS UNILATERAL [None]
  - EYE DISORDER [None]
  - EYE HAEMORRHAGE [None]
  - THROMBOSIS [None]
  - VISUAL ACUITY REDUCED [None]
